FAERS Safety Report 10194830 (Version 2)
Quarter: 2014Q2

REPORT INFORMATION
  Report Type: Spontaneous
  Country: PK (occurrence: PK)
  Receive Date: 20140526
  Receipt Date: 20140606
  Transmission Date: 20141212
  Serious: Yes (Death, Hospitalization)
  Sender: FDA-Public Use
  Company Number: PK-PFIZER INC-2014139654

PATIENT
  Age: 70 Year
  Sex: Male

DRUGS (2)
  1. SUTENT [Suspect]
     Indication: METASTATIC RENAL CELL CARCINOMA
     Dosage: 50 MG, UNK
     Route: 048
     Dates: start: 2012
  2. SUTENT [Suspect]
     Dosage: 25 MG, UNK
     Route: 048
     Dates: end: 201402

REACTIONS (2)
  - Cardiopulmonary failure [Fatal]
  - Pneumonia [Unknown]
